FAERS Safety Report 8865804 (Version 1)
Quarter: 2012Q4

REPORT INFORMATION
  Report Type: 
  Country: US (occurrence: US)
  Receive Date: 20121024
  Receipt Date: 20121024
  Transmission Date: 20130627
  Serious: No
  Sender: FDA-Public Use
  Company Number: US-AMGEN-USASP2011064851

PATIENT
  Age: 21 Year
  Sex: Female

DRUGS (1)
  1. ENBREL [Suspect]
     Indication: PSORIASIS
     Dosage: 50 mg, qwk
     Dates: start: 20060101, end: 20120316

REACTIONS (6)
  - Scar [Not Recovered/Not Resolved]
  - Adverse drug reaction [Recovered/Resolved]
  - Erythema [Recovered/Resolved]
  - Guttate psoriasis [Not Recovered/Not Resolved]
  - Pruritus generalised [Recovered/Resolved]
  - Injection site pain [Recovered/Resolved]
